FAERS Safety Report 5309223-0 (Version None)
Quarter: 2007Q2

REPORT INFORMATION
  Report Type: 
  Country: None (occurrence: None)
  Receive Date: 20070423
  Receipt Date: 20070413
  Transmission Date: 20071010
  Serious: Yes (Other)
  Sender: FDA-Public Use
  Company Number: 2007SP007295

PATIENT
  Age: 80 Year
  Sex: Male
  Weight: 39 kg

DRUGS (10)
  1. TEMODAL [Suspect]
     Indication: GLIOBLASTOMA MULTIFORME
     Dosage: SEE IMAGE
     Route: 048
     Dates: start: 20061004, end: 20061008
  2. TEMODAL [Suspect]
     Indication: GLIOBLASTOMA MULTIFORME
     Dosage: SEE IMAGE
     Route: 048
     Dates: start: 20061124, end: 20061128
  3. TEMODAL [Suspect]
     Indication: GLIOBLASTOMA MULTIFORME
     Dosage: SEE IMAGE
     Route: 048
     Dates: start: 20061222, end: 20061226
  4. PREDONINE (C0ON.) [Concomitant]
  5. BASEN (CON.) [Concomitant]
  6. STARSIS (CON.) [Concomitant]
  7. PARULEON (CON.) [Concomitant]
  8. MAGNESIUM OXIDE (CON.) [Concomitant]
  9. DEPAS (CON.) [Concomitant]
  10. NAUZELIN (CON.) [Concomitant]

REACTIONS (4)
  - DISSEMINATED INTRAVASCULAR COAGULATION [None]
  - GUTTATE PSORIASIS [None]
  - PLATELET COUNT DECREASED [None]
  - PNEUMONIA [None]
